FAERS Safety Report 6497569-2 (Version None)
Quarter: 2009Q4

REPORT INFORMATION
  Report Type: 
  Country: None (occurrence: None)
  Receive Date: 20091211
  Receipt Date: 20091124
  Transmission Date: 20100525
  Serious: Yes (Hospitalization)
  Sender: FDA-Public Use
  Company Number: 002592

PATIENT
  Sex: Male

DRUGS (18)
  1. ROTIGOTINE (ROTIGOTINE) [Suspect]
     Indication: PARKINSON'S DISEASE
     Dosage: SEE IMAGE
     Route: 062
     Dates: start: 20090127, end: 20090203
  2. ROTIGOTINE (ROTIGOTINE) [Suspect]
     Indication: PARKINSON'S DISEASE
     Dosage: SEE IMAGE
     Route: 062
     Dates: start: 20090203, end: 20090210
  3. ROTIGOTINE (ROTIGOTINE) [Suspect]
     Indication: PARKINSON'S DISEASE
     Dosage: SEE IMAGE
     Route: 062
     Dates: start: 20090210, end: 20090216
  4. ROTIGOTINE (ROTIGOTINE) [Suspect]
     Indication: PARKINSON'S DISEASE
     Dosage: SEE IMAGE
     Route: 062
     Dates: start: 20090216, end: 20090223
  5. ROTIGOTINE (ROTIGOTINE) [Suspect]
     Indication: PARKINSON'S DISEASE
     Dosage: SEE IMAGE
     Route: 062
     Dates: start: 20090223, end: 20091005
  6. ROTIGOTINE (ROTIGOTINE) [Suspect]
     Indication: PARKINSON'S DISEASE
     Dosage: SEE IMAGE
     Route: 062
     Dates: start: 20091006
  7. SYMMETREL [Suspect]
     Indication: PARKINSON'S DISEASE
     Dosage: (200 MG ORAL), (100 MG ORAL)
     Route: 048
     Dates: start: 20090106, end: 20090628
  8. SYMMETREL [Suspect]
     Indication: PARKINSON'S DISEASE
     Dosage: (200 MG ORAL), (100 MG ORAL)
     Route: 048
     Dates: start: 20090629, end: 20090630
  9. DIOVAN [Suspect]
     Indication: HYPERTENSION
     Dosage: (160 MG ORAL)
     Route: 048
     Dates: start: 20081126, end: 20090629
  10. AMARYL [Suspect]
     Indication: DIABETES MELLITUS
     Dosage: (2 MG ORAL)
     Route: 048
     Dates: start: 20081203, end: 20090629
  11. ACTOS [Suspect]
     Indication: DIABETES MELLITUS
     Dosage: (15 MG ORAL)
     Route: 048
     Dates: start: 20000712, end: 20090629
  12. FERROUS SODIUM CITRATE [Concomitant]
  13. BENIDIPINE HYDROCHLORIDE [Concomitant]
  14. CLOPIDOGREL SULFATE [Concomitant]
  15. MAGNESIUM OXIDE [Concomitant]
  16. BETAMETHASONE VALERATE [Concomitant]
  17. ETIZOLAM [Concomitant]
  18. CLONAZEPAM [Concomitant]

REACTIONS (8)
  - DEHYDRATION [None]
  - DYSKINESIA [None]
  - GAIT DISTURBANCE [None]
  - HYPOGLYCAEMIA [None]
  - LOSS OF CONSCIOUSNESS [None]
  - MYOCLONUS [None]
  - PALLOR [None]
  - RENAL IMPAIRMENT [None]
